FAERS Safety Report 5869477-9 (Version None)
Quarter: 2008Q3

REPORT INFORMATION
  Report Type: 
  Country: None (occurrence: None)
  Receive Date: 20080828
  Receipt Date: 20080813
  Transmission Date: 20090109
  Serious: Yes (Hospitalization)
  Sender: FDA-Public Use
  Company Number: IDA-00125

PATIENT
  Age: 83 Year
  Sex: Male

DRUGS (6)
  1. INEXIUM (ESOMEPRAZOLE MAGNESIUM) STRENGTH 40 MG [Suspect]
     Dosage: ORAL FORMULATION:TABLET MUPS
     Route: 048
  2. AVLOCARDYL (PROPRANOLOL) STRENGTH 40 MG [Suspect]
     Dosage: 20 MG DAILY ORAL FORMULATION:TABLET
     Route: 048
  3. FRAXIPARINE (NADROPARIN CALCIUM) [Suspect]
     Indication: DIALYSIS
     Dosage: DOSE TEXT: 3800 IU INTRA-ARTERIAL
     Route: 013
  4. LASILIX (FUROSEMIDE) STRENGTH: 500MG [Suspect]
     Dosage: ORAL FORMULATION: TABLET
     Route: 048
  5. HEXAQUIN (MELALEUCA VIRIDIFLORA OIL, QUININE BENZOATE, THIAMINE HYDROC [Suspect]
     Dosage: 1 DF PRN ORAL
     Route: 048
  6. OROCAL (CALCIUM CARBOANTE) STRENGTH: 500MG [Suspect]
     Dosage: ORAL FORMULATION: TABLET
     Route: 048

REACTIONS (3)
  - ABDOMINAL PAIN [None]
  - HYPERTENSION [None]
  - INTRAVASCULAR HAEMOLYSIS [None]
